FAERS Safety Report 6634131-2 (Version None)
Quarter: 2010Q1

REPORT INFORMATION
  Report Type: 
  Country: None (occurrence: None)
  Receive Date: 20100315
  Receipt Date: 20100302
  Transmission Date: 20100710
  Serious: Yes (Hospitalization, Other)
  Sender: FDA-Public Use
  Company Number: FR-ELI_LILLY_AND_COMPANY-FR201003000398

PATIENT
  Sex: Female

DRUGS (5)
  1. PROZAC [Suspect]
     Indication: MAJOR DEPRESSION
     Route: 048
     Dates: start: 20091020, end: 20091029
  2. LEXOMIL [Concomitant]
     Indication: DEPRESSION
     Dosage: 12 MG, DAILY (1/D)
     Route: 048
     Dates: start: 20091020, end: 20091029
  3. NORSET [Concomitant]
     Indication: DEPRESSION
     Dosage: 1 D/F, DAILY (1/D)
     Route: 048
     Dates: start: 20091020, end: 20091104
  4. THERALENE [Concomitant]
     Indication: DEPRESSION
     Dosage: 25 TO 40 DROPS, DAILY (1/D)
     Route: 048
     Dates: start: 20091020, end: 20091109
  5. DEROXAT [Concomitant]
     Indication: DEPRESSION
     Route: 048
     Dates: start: 20091020, end: 20091103

REACTIONS (1)
  - MIXED LIVER INJURY [None]
